FAERS Safety Report 15226314 (Version 1)
Quarter: 2018Q4

REPORT INFORMATION
  Report Type: Spontaneous
  Country: BG (occurrence: BG)
  Receive Date: 20180801
  Receipt Date: 20180801
  Transmission Date: 20190204
  Serious: Yes (Life-Threatening, Hospitalization)
  Sender: FDA-Public Use
  Company Number: BG-B. BRAUN MEDICAL INC.-2053070

PATIENT
  Age: 59 Year
  Sex: Female

DRUGS (1)
  1. 0.9% SODIUM CHLORIDE INJECTION USP 0264-1800-31 0264-1800-32 (NDA 0174 [Suspect]
     Active Substance: SODIUM CHLORIDE
     Dates: start: 20180703, end: 20180707

REACTIONS (4)
  - Tremor [Recovering/Resolving]
  - Cyanosis [Recovering/Resolving]
  - Condition aggravated [Recovering/Resolving]
  - Pyrexia [Recovering/Resolving]

NARRATIVE: CASE EVENT DATE: 20180703
